FAERS Safety Report 8434181-X (Version None)
Quarter: 2012Q2

REPORT INFORMATION
  Report Type: 
  Country: None (occurrence: None)
  Receive Date: 20120613
  Receipt Date: 20120604
  Transmission Date: 20120825
  Serious: Yes (Hospitalization)
  Sender: FDA-Public Use
  Company Number: US-ACTELION-A-NJ2012-66413

PATIENT

DRUGS (2)
  1. TRACLEER [Suspect]
     Indication: PULMONARY ARTERIAL HYPERTENSION
     Dosage: UNK
     Route: 048
     Dates: start: 20101203
  2. ASPIRIN [Concomitant]

REACTIONS (5)
  - FALL [None]
  - DIZZINESS [None]
  - DYSPNOEA EXERTIONAL [None]
  - TACHYCARDIA [None]
  - ATRIAL FIBRILLATION [None]
